FAERS Safety Report 24620825 (Version 10)
Quarter: 2025Q1

REPORT INFORMATION
  Report Type: Spontaneous
  Country: BR (occurrence: BR)
  Receive Date: 20241114
  Receipt Date: 20250327
  Transmission Date: 20250408
  Serious: Yes (Hospitalization, Other)
  Sender: SANDOZ
  Company Number: BR-002147023-NVSC2023BR157032

PATIENT
  Age: 58 Year
  Sex: Female
  Weight: 105 kg

DRUGS (15)
  1. ANASTROZOLE [Suspect]
     Active Substance: ANASTROZOLE
     Indication: Metastases to lung
     Dosage: 1 DF, QD  (6 MONTH AGO)
     Route: 048
  2. ANASTROZOLE [Suspect]
     Active Substance: ANASTROZOLE
     Indication: Breast cancer female
  3. ANASTROZOLE [Suspect]
     Active Substance: ANASTROZOLE
     Indication: Metastases to bone
  4. ANASTROZOLE [Suspect]
     Active Substance: ANASTROZOLE
     Indication: Metastases to lymph nodes
  5. ANASTROZOLE [Suspect]
     Active Substance: ANASTROZOLE
     Indication: Metastases to pelvis
  6. ANASTROZOLE [Suspect]
     Active Substance: ANASTROZOLE
     Indication: Metastatic gastric cancer
  7. KISQALI [Suspect]
     Active Substance: RIBOCICLIB
     Indication: Metastases to bone
     Dosage: 3 DOSAGE FORM (3 TABLETS PER DAY), QD (OTHER)
     Route: 048
  8. KISQALI [Suspect]
     Active Substance: RIBOCICLIB
     Indication: Metastases to lung
     Route: 048
  9. KISQALI [Suspect]
     Active Substance: RIBOCICLIB
     Indication: Metastases to pelvis
     Route: 048
     Dates: start: 20240325
  10. KISQALI [Suspect]
     Active Substance: RIBOCICLIB
     Indication: Metastases to lymph nodes
     Route: 048
  11. KISQALI [Suspect]
     Active Substance: RIBOCICLIB
     Indication: Breast cancer female
     Dosage: 3 DOSAGE FORM, QD (4 OR 5 MONTHS AGO)
     Route: 048
     Dates: start: 20230506
  12. KISQALI [Suspect]
     Active Substance: RIBOCICLIB
     Indication: Metastatic gastric cancer
     Route: 048
     Dates: start: 20240429
  13. DULOXETINE [Concomitant]
     Active Substance: DULOXETINE
     Indication: Depression
     Dosage: 1 DF, QD (STARTED 10 YEARS AGO)
     Route: 048
  14. LOSARTAN [Concomitant]
     Active Substance: LOSARTAN
     Dosage: 1 DF, QD, (15 YEARS AGO)
     Route: 048
  15. LOSARTAN [Concomitant]
     Active Substance: LOSARTAN
     Indication: Hypertension
     Dosage: 4 DF, QD, 2 DF, BID (2 DOSAGE FORM, BID (STARTED 9 YEARS AGO)
     Route: 048

REACTIONS (61)
  - Joint lock [Not Recovered/Not Resolved]
  - Condition aggravated [Unknown]
  - Chest discomfort [Unknown]
  - Dyspnoea [Unknown]
  - Malaise [Not Recovered/Not Resolved]
  - Deafness unilateral [Recovering/Resolving]
  - Ear pain [Recovered/Resolved]
  - Labyrinthitis [Unknown]
  - Metastases to lung [Unknown]
  - Metastases to bone [Unknown]
  - Metastases to neck [Not Recovered/Not Resolved]
  - Metastasis [Not Recovered/Not Resolved]
  - Breast cancer female [Unknown]
  - Malignant neoplasm progression [Unknown]
  - Metastases to central nervous system [Unknown]
  - Joint swelling [Not Recovered/Not Resolved]
  - Feeding disorder [Not Recovered/Not Resolved]
  - Visual impairment [Not Recovered/Not Resolved]
  - Decreased immune responsiveness [Recovered/Resolved]
  - Illness [Unknown]
  - Pigmentation disorder [Unknown]
  - Pain in extremity [Not Recovered/Not Resolved]
  - Memory impairment [Not Recovered/Not Resolved]
  - Aphthous ulcer [Recovered/Resolved]
  - Feeling abnormal [Not Recovered/Not Resolved]
  - Gait disturbance [Unknown]
  - Reading disorder [Unknown]
  - Brain fog [Not Recovered/Not Resolved]
  - Movement disorder [Not Recovered/Not Resolved]
  - Discouragement [Recovering/Resolving]
  - Decreased immune responsiveness [Recovered/Resolved]
  - Laziness [Recovering/Resolving]
  - Lacrimation increased [Not Recovered/Not Resolved]
  - Stress [Not Recovered/Not Resolved]
  - Fall [Unknown]
  - Neck mass [Unknown]
  - Breast mass [Not Recovered/Not Resolved]
  - Weight increased [Unknown]
  - Swelling [Recovered/Resolved]
  - Swelling [Unknown]
  - Chest pain [Unknown]
  - Anxiety [Not Recovered/Not Resolved]
  - Back pain [Recovered/Resolved]
  - Back pain [Recovered/Resolved]
  - Peripheral swelling [Not Recovered/Not Resolved]
  - Peripheral swelling [Recovered/Resolved]
  - Pain [Recovered/Resolved]
  - Back pain [Recovering/Resolving]
  - Dizziness [Not Recovered/Not Resolved]
  - Abdominal discomfort [Not Recovered/Not Resolved]
  - Discomfort [Unknown]
  - Asthenia [Recovered/Resolved]
  - Arthralgia [Not Recovered/Not Resolved]
  - Head discomfort [Recovering/Resolving]
  - Spinal pain [Not Recovered/Not Resolved]
  - Headache [Recovered/Resolved]
  - Headache [Not Recovered/Not Resolved]
  - Pruritus [Recovered/Resolved]
  - Neoplasm recurrence [Unknown]
  - Vision blurred [Unknown]
  - Fear of disease [Unknown]

NARRATIVE: CASE EVENT DATE: 20230601
